FAERS Safety Report 7781729-4 (Version None)
Quarter: 2011Q3

REPORT INFORMATION
  Report Type: 
  Country: None (occurrence: None)
  Receive Date: 20110927
  Receipt Date: 20110920
  Transmission Date: 20111222
  Serious: Yes (Hospitalization)
  Sender: FDA-Public Use
  Company Number: US-GLAXOSMITHKLINE-A0890943A

PATIENT
  Age: 60 Year
  Sex: Male
  Weight: 110.9 kg

DRUGS (7)
  1. TRICOR [Concomitant]
  2. COZAAR [Concomitant]
  3. NEXIUM [Concomitant]
  4. INSULIN [Concomitant]
  5. LEVOTHYROXINE SODIUM [Concomitant]
  6. ZOCOR [Concomitant]
  7. AVANDIA [Suspect]
     Indication: DIABETES MELLITUS
     Dosage: 8MG PER DAY
     Route: 048
     Dates: start: 20010109, end: 20080401

REACTIONS (2)
  - CEREBROVASCULAR ACCIDENT [None]
  - MYOCARDIAL ISCHAEMIA [None]
